FAERS Safety Report 16646397 (Version 3)
Quarter: 2020Q4

REPORT INFORMATION
  Report Type: Spontaneous
  Country: US (occurrence: US)
  Receive Date: 20190730
  Receipt Date: 20201106
  Transmission Date: 20210113
  Serious: Yes (Hospitalization, Other)
  Sender: FDA-Public Use
  Company Number: US-GLAXOSMITHKLINE-US2019133750

PATIENT
  Sex: Female

DRUGS (5)
  1. TRELEGY ELLIPTA [Suspect]
     Active Substance: FLUTICASONE FUROATE\UMECLIDINIUM BROMIDE\VILANTEROL TRIFENATATE
     Indication: CHRONIC OBSTRUCTIVE PULMONARY DISEASE
     Dosage: 1 PUFF(S), QD (100/62.5/25 MCG)
     Route: 055
     Dates: start: 201811
  2. SOTALOL. [Interacting]
     Active Substance: SOTALOL
     Indication: ATRIAL FIBRILLATION
     Dosage: UNK
     Route: 065
  3. BREO ELLIPTA [Interacting]
     Active Substance: FLUTICASONE FUROATE\VILANTEROL TRIFENATATE
     Indication: PRODUCT USED FOR UNKNOWN INDICATION
     Dosage: 1 PUFF(S), QD
     Route: 055
  4. SPIRIVA [Suspect]
     Active Substance: TIOTROPIUM BROMIDE MONOHYDRATE
     Indication: PRODUCT USED FOR UNKNOWN INDICATION
     Dosage: UNK
     Route: 065
  5. ALBUTEROL. [Concomitant]
     Active Substance: ALBUTEROL
     Indication: PRODUCT USED FOR UNKNOWN INDICATION
     Dosage: UNK
     Route: 065

REACTIONS (12)
  - Sinus congestion [Recovered/Resolved]
  - Body height decreased [Unknown]
  - Oral candidiasis [Unknown]
  - Drug ineffective [Unknown]
  - Atrial fibrillation [Recovered/Resolved]
  - Wrong technique in device usage process [Unknown]
  - Labelled drug-drug interaction medication error [Unknown]
  - Urinary retention [Unknown]
  - Hypertension [Not Recovered/Not Resolved]
  - Dyspnoea [Recovered/Resolved]
  - Adverse drug reaction [Unknown]
  - Product dose omission issue [Unknown]
